FAERS Safety Report 9740084 (Version 1)
Quarter: 2013Q4

REPORT INFORMATION
  Report Type: Spontaneous
  Country: FR (occurrence: FR)
  Receive Date: 20131209
  Receipt Date: 20131209
  Transmission Date: 20140711
  Serious: Yes (Hospitalization)
  Sender: FDA-Public Use
  Company Number: FR-GLAXOSMITHKLINE-B0950237A

PATIENT
  Age: 48 Year
  Sex: Female

DRUGS (5)
  1. AZANTAC [Suspect]
     Indication: PREOPERATIVE CARE
     Dosage: 300MG SINGLE DOSE
     Route: 048
     Dates: start: 20131106, end: 20131106
  2. PARACETAMOL [Suspect]
     Indication: PREOPERATIVE CARE
     Dosage: 1G SINGLE DOSE
     Route: 048
     Dates: start: 20131106, end: 20131106
  3. CEFAZOLINE [Suspect]
     Indication: PREOPERATIVE CARE
     Dosage: 2G SINGLE DOSE
     Route: 042
     Dates: start: 20131106, end: 20131106
  4. IBUPROFENE [Suspect]
     Indication: PREOPERATIVE CARE
     Dosage: 400MG SINGLE DOSE
     Route: 048
     Dates: start: 20131106, end: 20131106
  5. MIDAZOLAM [Suspect]
     Indication: PREOPERATIVE CARE
     Route: 048
     Dates: start: 20131106, end: 20131106

REACTIONS (3)
  - Erythema [Recovered/Resolved]
  - Face oedema [Recovered/Resolved]
  - Urticaria [Recovered/Resolved]
